FAERS Safety Report 8285577-0 (Version None)
Quarter: 2012Q2

REPORT INFORMATION
  Report Type: 
  Country: None (occurrence: None)
  Receive Date: 20120413
  Receipt Date: 20120124
  Transmission Date: 20120825
  Serious: No
  Sender: FDA-Public Use
  Company Number: US-ASTRAZENECA-2012SE04823

PATIENT
  Age: 64 Year
  Sex: Female
  Weight: 94.3 kg

DRUGS (2)
  1. NEXIUM [Suspect]
     Indication: ULCER
     Route: 048
  2. SYNTHROID [Concomitant]
     Indication: THYROID DISORDER

REACTIONS (5)
  - VERTIGO [None]
  - THROAT IRRITATION [None]
  - DYSSTASIA [None]
  - DIZZINESS [None]
  - DRUG DOSE OMISSION [None]
